FAERS Safety Report 11293430 (Version 1)
Quarter: 2015Q3

REPORT INFORMATION
  Report Type: Spontaneous
  Country: TR (occurrence: TR)
  Receive Date: 20150722
  Receipt Date: 20150722
  Transmission Date: 20151125
  Serious: Yes (Hospitalization)
  Sender: FDA-Public Use
  Company Number: PHHY2015TR086475

PATIENT
  Age: 45 Year
  Sex: Female

DRUGS (2)
  1. DOXYCYCLINE. [Suspect]
     Active Substance: DOXYCYCLINE
     Indication: BACTERIAL INFECTION
     Dosage: 200 MG, QD
     Route: 065
  2. AMIKACIN [Suspect]
     Active Substance: AMIKACIN
     Indication: BACTERIAL INFECTION
     Dosage: 1 G, QD
     Route: 065

REACTIONS (2)
  - Infection reactivation [Unknown]
  - Drug ineffective [Unknown]
